FAERS Safety Report 14629178 (Version 1)
Quarter: 2018Q1

REPORT INFORMATION
  Report Type: Spontaneous
  Country: US (occurrence: US)
  Receive Date: 20180312
  Receipt Date: 20180312
  Transmission Date: 20180509
  Serious: No
  Sender: FDA-Public Use
  Company Number: None

PATIENT
  Age: 32 Year
  Sex: Female
  Weight: 75.3 kg

DRUGS (1)
  1. PHENTERMINE. [Suspect]
     Active Substance: PHENTERMINE
     Indication: WEIGHT DECREASED
     Dates: start: 20171231, end: 20180312

REACTIONS (4)
  - Impaired healing [None]
  - Skin injury [None]
  - Skin ulcer [None]
  - Pain [None]

NARRATIVE: CASE EVENT DATE: 20180114
